FAERS Safety Report 15049683 (Version 1)
Quarter: 2018Q2

REPORT INFORMATION
  Report Type: Spontaneous
  Country: US (occurrence: US)
  Receive Date: 20180622
  Receipt Date: 20180622
  Transmission Date: 20180711
  Serious: No
  Sender: FDA-Public Use
  Company Number: US-ADAMAS PHARMA, LLC-2018ADA00576

PATIENT
  Age: 67 Year
  Sex: Female
  Weight: 58.96 kg

DRUGS (9)
  1. ASPIRIN. [Concomitant]
     Active Substance: ASPIRIN
     Dosage: 81 MG, 1X/DAY
     Route: 048
  2. GOCOVRI [Suspect]
     Active Substance: AMANTADINE
     Dosage: 2 CAPSULES, 1X/DAY
     Dates: start: 20180311, end: 2018
  3. GOCOVRI [Suspect]
     Active Substance: AMANTADINE
     Dosage: 1 CAPSULES, 1X/DAY
     Dates: start: 2018, end: 20180410
  4. DITROPAN [Concomitant]
     Active Substance: OXYBUTYNIN CHLORIDE
     Dosage: 5 MG, 1X/DAY
     Route: 048
  5. GOCOVRI [Suspect]
     Active Substance: AMANTADINE
     Dosage: 1 CAPSULES, 1X/DAY
     Dates: start: 20180304, end: 20180310
  6. SINEMET [Concomitant]
     Active Substance: CARBIDOPA\LEVODOPA
     Dosage: 1 TABLETS, 3X/DAY
     Route: 048
  7. ZOCOR [Concomitant]
     Active Substance: SIMVASTATIN
     Dosage: 10 MG, 1X/DAY
     Route: 048
  8. DITROPAN XL [Concomitant]
     Active Substance: OXYBUTYNIN CHLORIDE
     Dosage: 15 MG, 1X/DAY
     Route: 048
  9. BONIVA [Concomitant]
     Active Substance: IBANDRONATE SODIUM
     Dosage: 150 MG, 1X/MONTH
     Route: 048

REACTIONS (6)
  - Dysarthria [Unknown]
  - Hallucination, auditory [Recovered/Resolved]
  - Dyskinesia [Unknown]
  - Sensory disturbance [Unknown]
  - Drug effect decreased [Unknown]
  - Fall [Unknown]

NARRATIVE: CASE EVENT DATE: 2018
